FAERS Safety Report 8437909-8 (Version None)
Quarter: 2012Q2

REPORT INFORMATION
  Report Type: 
  Country: None (occurrence: None)
  Receive Date: 20120614
  Receipt Date: 20120522
  Transmission Date: 20120825
  Serious: No
  Sender: FDA-Public Use
  Company Number: US-AMGEN-USASP2012032258

PATIENT
  Age: 72 Year
  Sex: Female

DRUGS (7)
  1. OMEPRAZOLE [Concomitant]
     Dosage: 1 MG, UNK
  2. SIMVASTATIN [Concomitant]
     Dosage: 1 MG, UNK
  3. METOPROLOL TARTRATE [Concomitant]
     Dosage: 2 MG, UNK
  4. PROLIA [Suspect]
     Indication: OSTEOPOROSIS POSTMENOPAUSAL
     Dosage: 60 MG, Q6MO
  5. LISINOPRIL [Concomitant]
     Dosage: 1 MG, UNK
  6. LEVOXYL [Concomitant]
     Dosage: 1 MG, UNK
  7. TRAMADOL HCL [Concomitant]
     Dosage: 2 MG, UNK

REACTIONS (4)
  - BACK PAIN [None]
  - PAIN [None]
  - DYSSTASIA [None]
  - HYPOKINESIA [None]
